FAERS Safety Report 4309511-0 (Version None)
Quarter: 2004Q1

REPORT INFORMATION
  Report Type: 
  Country: None (occurrence: None)
  Receive Date: 20040301
  Receipt Date: 20040216
  Transmission Date: 20041129
  Serious: Yes (Hospitalization)
  Sender: FDA-Public Use
  Company Number: 2004CG00315

PATIENT
  Age: 1 Day
  Sex: Female
  Weight: 1.7 kg

DRUGS (13)
  1. MOPRAL [Suspect]
     Dates: start: 20031223, end: 20031224
  2. ARACYTINE [Suspect]
     Dates: start: 20031223
  3. ENDOXAN [Suspect]
     Dates: start: 20031211
  4. METHOTREXATE [Suspect]
     Dates: start: 20031223
  5. NEUPOGEN [Suspect]
     Dates: start: 20031223, end: 20031224
  6. DOXORUBICIN HCL [Suspect]
     Dates: start: 20031211
  7. ONCOVIN [Suspect]
     Dates: start: 20031211, end: 20031211
  8. CORTANCYL [Suspect]
     Dates: start: 20031211, end: 20031211
  9. DEPO-MEDROL [Suspect]
     Dates: start: 20031211, end: 20031211
  10. DEPO-MEDROL [Suspect]
     Dates: start: 20031219, end: 20031219
  11. DEPO-MEDROL [Suspect]
     Dates: start: 20031223, end: 20031223
  12. SOLU-MEDROL [Suspect]
     Dates: start: 20031223, end: 20031225
  13. TAZOCILLINE [Suspect]
     Dates: start: 20031223, end: 20031225

REACTIONS (5)
  - GAMMA-GLUTAMYLTRANSFERASE INCREASED [None]
  - HYPERBILIRUBINAEMIA NEONATAL [None]
  - JAUNDICE NEONATAL [None]
  - MATERNAL DRUGS AFFECTING FOETUS [None]
  - PREMATURE BABY [None]
